FAERS Safety Report 14686267 (Version 1)
Quarter: 2018Q1

REPORT INFORMATION
  Report Type: Spontaneous
  Country: US (occurrence: US)
  Receive Date: 20180326
  Receipt Date: 20180326
  Transmission Date: 20180509
  Serious: Yes (Hospitalization)
  Sender: FDA-Public Use
  Company Number: None

PATIENT
  Sex: Female

DRUGS (13)
  1. METHOTREXATE. [Concomitant]
     Active Substance: METHOTREXATE
  2. 1 ML TB SYRING MIS [Concomitant]
  3. KETOCONAZOLE. [Concomitant]
     Active Substance: KETOCONAZOLE
  4. ATORVASTATIN [Concomitant]
     Active Substance: ATORVASTATIN
  5. CLINDAMYCIN. [Concomitant]
     Active Substance: CLINDAMYCIN
  6. COSENTYX [Suspect]
     Active Substance: SECUKINUMAB
     Indication: PSORIASIS
     Dosage: ?          OTHER FREQUENCY:QW FOR 5 WEEKS;?
     Route: 058
     Dates: start: 20180301
  7. METFORMIN [Concomitant]
     Active Substance: METFORMIN HYDROCHLORIDE
  8. MELOXICAM. [Concomitant]
     Active Substance: MELOXICAM
  9. OMEPRAZOLE. [Concomitant]
     Active Substance: OMEPRAZOLE
  10. CALCIPOTRIEN [Concomitant]
  11. ATORVASTATIN [Concomitant]
     Active Substance: ATORVASTATIN
  12. TRIAMCINOLON OIN [Concomitant]
  13. BUPROPN [Concomitant]

REACTIONS (1)
  - Drug ineffective [None]
